FAERS Safety Report 9618746 (Version 2)
Quarter: 2013Q4

REPORT INFORMATION
  Report Type: Report from Study
  Country: DE (occurrence: DE)
  Receive Date: 20131014
  Receipt Date: 20131016
  Transmission Date: 20140711
  Serious: No
  Sender: FDA-Public Use
  Company Number: DE-JNJFOC-20131004134

PATIENT
  Age: 80 Year
  Sex: Female
  Weight: 72.3 kg

DRUGS (4)
  1. REMICADE [Suspect]
     Indication: RHEUMATOID ARTHRITIS
     Route: 042
     Dates: start: 20130404
  2. REMICADE [Suspect]
     Indication: RHEUMATOID ARTHRITIS
     Route: 042
  3. REMICADE [Suspect]
     Indication: RHEUMATOID ARTHRITIS
     Route: 042
     Dates: start: 20130419
  4. ARCOXIA [Concomitant]
     Route: 065
     Dates: start: 20130419

REACTIONS (1)
  - Herpes zoster [Recovering/Resolving]
